FAERS Safety Report 18686980 (Version 2)
Quarter: 2021Q4

REPORT INFORMATION
  Report Type: Spontaneous
  Country: FR (occurrence: FR)
  Receive Date: 20201231
  Receipt Date: 20211122
  Transmission Date: 20220304
  Serious: Yes (Other)
  Sender: FDA-Public Use
  Company Number: SPD-ARW200012 ARTICLE 285

PATIENT
  Age: 65 Year
  Sex: Male

DRUGS (1)
  1. CLOZAPINE [Suspect]
     Active Substance: CLOZAPINE
     Indication: Product used for unknown indication
     Dosage: 25 MILLIGRAM, FOUR TIMES/DAY
     Route: 065

REACTIONS (5)
  - Hepatic cytolysis [Unknown]
  - Congestive cardiomyopathy [Unknown]
  - Low cardiac output syndrome [Unknown]
  - Left ventricular dilatation [Unknown]
  - Ejection fraction decreased [Unknown]
